FAERS Safety Report 6294882-9 (Version None)
Quarter: 2009Q3

REPORT INFORMATION
  Report Type: 
  Country: None (occurrence: None)
  Receive Date: 20090731
  Receipt Date: 20090731
  Transmission Date: 20100115
  Serious: Yes (Other)
  Sender: FDA-Public Use
  Company Number: None

PATIENT
  Sex: Female
  Weight: 62.1428 kg

DRUGS (1)
  1. LEVAQUIN [Suspect]
     Indication: SINUSITIS
     Dosage: 1 TABLET 1 DAILY PO
     Route: 048
     Dates: start: 20090709, end: 20090716

REACTIONS (6)
  - FATIGUE [None]
  - MUSCLE TWITCHING [None]
  - MUSCULAR WEAKNESS [None]
  - PAIN IN EXTREMITY [None]
  - PARAESTHESIA [None]
  - SINUSITIS [None]
